FAERS Safety Report 5364682-2 (Version None)
Quarter: 2007Q2

REPORT INFORMATION
  Report Type: 
  Country: None (occurrence: None)
  Receive Date: 20070621
  Receipt Date: 20070611
  Transmission Date: 20071010
  Serious: Yes (Hospitalization)
  Sender: FDA-Public Use
  Company Number: PHNU2007PL02108

PATIENT
  Sex: Female

DRUGS (7)
  1. VISKEN [Suspect]
     Dosage: 5 MG/DAY
     Route: 048
     Dates: start: 20070426, end: 20070501
  2. BETALOC ZOK [Suspect]
     Dosage: 50 MG/DAY
     Route: 048
     Dates: start: 20070426, end: 20070501
  3. KALIPOZ [Concomitant]
  4. SIMVASTATIN [Concomitant]
  5. ACARD [Concomitant]
  6. GLUCOSAMINE [Concomitant]
  7. CHONDROITIN A [Concomitant]

REACTIONS (1)
  - BRADYCARDIA [None]
